FAERS Safety Report 17807968 (Version 2)
Quarter: 2020Q2

REPORT INFORMATION
  Report Type: Report from Study
  Country: US (occurrence: US)
  Receive Date: 20200520
  Receipt Date: 20200616
  Transmission Date: 20200714
  Serious: Yes (Other)
  Sender: FDA-Public Use
  Company Number: US-PFIZER INC-2020147816

PATIENT
  Age: 64 Year
  Sex: Female

DRUGS (5)
  1. FASLODEX [Concomitant]
     Active Substance: FULVESTRANT
     Dosage: UNK
  2. IBRANCE [Suspect]
     Active Substance: PALBOCICLIB
     Dosage: 125 MG, CYCLIC (21 DAYS DAILY ON, 7 DAYS OFF)
     Route: 048
     Dates: start: 20200414, end: 20200505
  3. IBRANCE [Suspect]
     Active Substance: PALBOCICLIB
     Dosage: 125 MG, CYCLIC (21 DAYS DAILY ON, 7 DAYS OFF)
     Route: 048
     Dates: start: 20200512
  4. IBRANCE [Suspect]
     Active Substance: PALBOCICLIB
     Dosage: 125 MG, CYCLIC (21 DAYS DAILY ON, 7 DAYS OFF)
     Route: 048
     Dates: start: 20200505, end: 20200511
  5. IBRANCE [Suspect]
     Active Substance: PALBOCICLIB
     Indication: BREAST CANCER FEMALE
     Dosage: 125 MG, CYCLIC (21 DAYS DAILY ON, 7 DAYS OFF)
     Route: 048
     Dates: start: 20200213, end: 20200410

REACTIONS (11)
  - Leukopenia [Not Recovered/Not Resolved]
  - Heart rate increased [Not Recovered/Not Resolved]
  - Pulmonary mass [Unknown]
  - Decreased appetite [Unknown]
  - Dyspepsia [Not Recovered/Not Resolved]
  - Renal impairment [Unknown]
  - Fatigue [Not Recovered/Not Resolved]
  - Insomnia [Unknown]
  - Dyspnoea [Not Recovered/Not Resolved]
  - Stomatitis [Not Recovered/Not Resolved]
  - Pyrexia [Unknown]

NARRATIVE: CASE EVENT DATE: 2020
